FAERS Safety Report 15265229 (Version 1)
Quarter: 2018Q3

REPORT INFORMATION
  Report Type: Spontaneous
  Country: US (occurrence: US)
  Receive Date: 20180810
  Receipt Date: 20180810
  Transmission Date: 20181010
  Serious: No
  Sender: FDA-Public Use
  Company Number: US-MYLANLABS-2018M1059472

PATIENT
  Sex: Female
  Weight: 64 kg

DRUGS (1)
  1. LIDOCAINE PATCH [Suspect]
     Active Substance: LIDOCAINE
     Indication: ARTHRALGIA
     Dosage: 2 PATCHES TO LEFT KNEE DAILY FOR 12 HOURS, OFF FOR 12 HOURS
     Route: 003

REACTIONS (3)
  - Product quality issue [Not Recovered/Not Resolved]
  - Product use in unapproved indication [Unknown]
  - Product adhesion issue [Not Recovered/Not Resolved]
